FAERS Safety Report 18510959 (Version 3)
Quarter: 2020Q4

REPORT INFORMATION
  Report Type: Report from Study
  Country: CA (occurrence: CA)
  Receive Date: 20201117
  Receipt Date: 20201215
  Transmission Date: 20210114
  Serious: Yes (Hospitalization, Other)
  Sender: FDA-Public Use
  Company Number: CA-TAKEDA-2020TUS035891

PATIENT
  Age: 46 Year
  Sex: Female

DRUGS (8)
  1. VEDOLIZUMAB [Suspect]
     Active Substance: VEDOLIZUMAB
     Dosage: 300 MILLIGRAM, Q4WEEKS
     Route: 042
  2. VEDOLIZUMAB [Suspect]
     Active Substance: VEDOLIZUMAB
     Indication: CROHN^S DISEASE
     Dosage: 300 MILLIGRAM
     Route: 042
     Dates: start: 20200515
  3. VEDOLIZUMAB [Suspect]
     Active Substance: VEDOLIZUMAB
     Dosage: 300 MILLIGRAM
     Route: 042
  4. CORTISONE [Concomitant]
     Active Substance: CORTISONE
     Dosage: 50 MILLIGRAM
     Dates: start: 202004
  5. VEDOLIZUMAB [Suspect]
     Active Substance: VEDOLIZUMAB
     Dosage: 300 MILLIGRAM, Q4WEEKS
     Route: 042
     Dates: start: 20201106
  6. CORTISONE [Concomitant]
     Active Substance: CORTISONE
     Dosage: 5 MILLIGRAM, 1/WEEK
  7. CORTISONE [Concomitant]
     Active Substance: CORTISONE
     Dosage: 30 MILLIGRAM
     Dates: start: 20200514
  8. TAPAZOLE [Concomitant]
     Active Substance: METHIMAZOLE
     Dosage: 5 MILLIGRAM

REACTIONS (5)
  - Off label use [Unknown]
  - Diarrhoea [Not Recovered/Not Resolved]
  - Crohn^s disease [Unknown]
  - Hyperthyroidism [Unknown]
  - Uterine polyp [Unknown]

NARRATIVE: CASE EVENT DATE: 20201002
